FAERS Safety Report 18573856 (Version 1)
Quarter: 2020Q4

REPORT INFORMATION
  Report Type: Spontaneous
  Country: IN (occurrence: IN)
  Receive Date: 20201203
  Receipt Date: 20201203
  Transmission Date: 20210114
  Serious: Yes (Death, Other)
  Sender: FDA-Public Use
  Company Number: NVSC2020IN320947

PATIENT
  Age: 26 Year
  Sex: Female
  Weight: 41.2 kg

DRUGS (11)
  1. AMOXICILLIN/CLAVULANIC ACID [Concomitant]
     Active Substance: AMOXICILLIN\CLAVULANIC ACID
     Indication: PULMONARY TUBERCULOSIS
     Dosage: UNK
     Route: 065
     Dates: start: 20200504
  2. METOCLOPRAMIDE. [Concomitant]
     Active Substance: METOCLOPRAMIDE
     Indication: VOMITING
     Dosage: UNK
     Route: 065
     Dates: start: 20200504
  3. ONDANSETRON [Concomitant]
     Active Substance: ONDANSETRON
     Indication: VOMITING
     Dosage: 8 MG
     Route: 065
     Dates: start: 20200504
  4. MOXIFLOXACIN. [Suspect]
     Active Substance: MOXIFLOXACIN
     Indication: PULMONARY TUBERCULOSIS
     Dosage: 600 MG, QD
     Route: 065
     Dates: start: 20200504
  5. CLOFAZIMINE [Suspect]
     Active Substance: CLOFAZIMINE
     Indication: PULMONARY TUBERCULOSIS
     Dosage: 100 MG, QD
     Route: 065
     Dates: start: 20200504
  6. LINEZOLID. [Concomitant]
     Active Substance: LINEZOLID
     Indication: PULMONARY TUBERCULOSIS
     Dosage: UNK
     Route: 065
     Dates: start: 20200504
  7. BEDAQUILINE [Suspect]
     Active Substance: BEDAQUILINE
     Indication: PULMONARY TUBERCULOSIS
     Dosage: 200 MG, TIW
     Route: 065
     Dates: start: 20200504
  8. OMEPRAZOLE. [Concomitant]
     Active Substance: OMEPRAZOLE
     Indication: GASTRITIS
     Dosage: UNK
     Route: 065
     Dates: start: 20200504
  9. GLYCOPYRRONIUM BROMIDE [Concomitant]
     Active Substance: GLYCOPYRRONIUM
     Indication: PULMONARY TUBERCULOSIS
     Dosage: UNK
     Route: 065
  10. IMIPENEM [Suspect]
     Active Substance: IMIPENEM
     Indication: PULMONARY TUBERCULOSIS
     Dosage: 1 G, BID
     Route: 042
     Dates: start: 20200504
  11. DELAMANID [Suspect]
     Active Substance: DELAMANID
     Indication: PULMONARY TUBERCULOSIS
     Dosage: 100 MG, BID
     Route: 065
     Dates: start: 20200504

REACTIONS (6)
  - Dizziness [Unknown]
  - Dyspnoea [Unknown]
  - Incorrect product administration duration [Unknown]
  - Death [Fatal]
  - Asthenia [Unknown]
  - General physical health deterioration [Unknown]

NARRATIVE: CASE EVENT DATE: 20201020
